FAERS Safety Report 8244851-4 (Version None)
Quarter: 2012Q1

REPORT INFORMATION
  Report Type: 
  Country: None (occurrence: None)
  Receive Date: 20120329
  Receipt Date: 20110615
  Transmission Date: 20120608
  Serious: No
  Sender: FDA-Public Use
  Company Number: US-MYLANLABS-2011S1012631

PATIENT
  Age: 62 Year
  Sex: Female

DRUGS (6)
  1. TOPAMAX [Concomitant]
  2. FENTANYL-100 [Suspect]
     Indication: PAIN
     Dosage: Q48H
     Route: 062
     Dates: start: 20110306
  3. MORPHINE SULFATE [Concomitant]
  4. ESTROGEN [Concomitant]
  5. STOOL SOFTENER [Concomitant]
  6. REQUIP [Concomitant]

REACTIONS (4)
  - PAIN [None]
  - RASH PAPULAR [None]
  - APPLICATION SITE VESICLES [None]
  - APPLICATION SITE RASH [None]
